FAERS Safety Report 20589321 (Version 2)
Quarter: 2022Q2

REPORT INFORMATION
  Report Type: Spontaneous
  Country: GB (occurrence: GB)
  Receive Date: 20220314
  Receipt Date: 20220418
  Transmission Date: 20220720
  Serious: Yes (Hospitalization, Other)
  Sender: FDA-Public Use
  Company Number: GB-MYLANLABS-2022M1018080

PATIENT
  Age: 49 Year
  Sex: Male

DRUGS (3)
  1. CLOZARIL [Suspect]
     Active Substance: CLOZAPINE
     Indication: Schizophrenia
     Dosage: UNK
     Route: 048
     Dates: start: 20031010, end: 20220304
  2. CLOZARIL [Suspect]
     Active Substance: CLOZAPINE
     Dosage: CLOZAPINE TITRATED
     Dates: start: 20220314
  3. CLOZARIL [Suspect]
     Active Substance: CLOZAPINE
     Dosage: 225 MILLIGRAM, BID
     Dates: start: 20220411

REACTIONS (6)
  - Colitis [Unknown]
  - Hypotension [Unknown]
  - Thrombocytopenia [Unknown]
  - Glomerular filtration rate decreased [Unknown]
  - Neutrophilia [Unknown]
  - Leukocytosis [Unknown]

NARRATIVE: CASE EVENT DATE: 20220307
